FAERS Safety Report 8545441-6 (Version None)
Quarter: 2012Q3

REPORT INFORMATION
  Report Type: 
  Country: None (occurrence: None)
  Receive Date: 20120727
  Receipt Date: 20111125
  Transmission Date: 20120928
  Serious: No
  Sender: FDA-Public Use
  Company Number: US-ASTRAZENECA-2011SE67053

PATIENT
  Age: 49 Year
  Sex: Female
  Weight: 81.6 kg

DRUGS (7)
  1. SEROQUEL XR [Suspect]
     Indication: AFFECTIVE DISORDER
     Route: 048
  2. SEROQUEL XR [Suspect]
     Route: 048
  3. ZOLOFT [Concomitant]
     Indication: ANXIETY
  4. SEROQUEL XR [Suspect]
     Route: 048
  5. SEROQUEL XR [Suspect]
     Indication: BIPOLAR DISORDER
     Route: 048
  6. SEROQUEL XR [Suspect]
     Route: 048
  7. SEROQUEL XR [Suspect]
     Indication: DEPRESSION
     Route: 048

REACTIONS (10)
  - CHILLS [None]
  - NAUSEA [None]
  - WITHDRAWAL SYNDROME [None]
  - IMPAIRED WORK ABILITY [None]
  - SLEEP DISORDER [None]
  - THERAPEUTIC RESPONSE UNEXPECTED [None]
  - OFF LABEL USE [None]
  - DRUG DOSE OMISSION [None]
  - AGITATION [None]
  - AFFECTIVE DISORDER [None]
